FAERS Safety Report 17552395 (Version 1)
Quarter: 2020Q1

REPORT INFORMATION
  Report Type: Spontaneous
  Country: CA (occurrence: CA)
  Receive Date: 20200317
  Receipt Date: 20200317
  Transmission Date: 20200409
  Serious: Yes (Other)
  Sender: FDA-Public Use
  Company Number: CA-TEVA-2020-CA-1203775

PATIENT
  Age: 18 Year
  Sex: Male
  Weight: 84 kg

DRUGS (11)
  1. THIOGUANINE [Concomitant]
     Active Substance: THIOGUANINE
  2. CYCLOPHOSPHAMIDE. [Concomitant]
     Active Substance: CYCLOPHOSPHAMIDE
  3. DAUNORUBICIN HYDROCHLORIDE. [Concomitant]
     Active Substance: DAUNORUBICIN HYDROCHLORIDE
  4. METHOTREXATE. [Concomitant]
     Active Substance: METHOTREXATE
  5. METHOTREXATE. [Suspect]
     Active Substance: METHOTREXATE
     Indication: MEDIASTINAL DISORDER
     Route: 065
  6. VINCRISTINE SULFATE. [Concomitant]
     Active Substance: VINCRISTINE SULFATE
     Indication: NON-HODGKIN^S LYMPHOMA
  7. L-ASPARAGINASE [Concomitant]
     Active Substance: ASPARAGINASE
  8. METHOTREXATE. [Suspect]
     Active Substance: METHOTREXATE
     Indication: NON-HODGKIN^S LYMPHOMA
     Route: 042
  9. DOXORUBICIN HYDROCHLORIDE. [Concomitant]
     Active Substance: DOXORUBICIN HYDROCHLORIDE
  10. CYTARABINE. [Concomitant]
     Active Substance: CYTARABINE
  11. MERCAPTOPURINE. [Concomitant]
     Active Substance: MERCAPTOPURINE

REACTIONS (2)
  - Disturbance in attention [Not Recovered/Not Resolved]
  - Reading disorder [Not Recovered/Not Resolved]
